FAERS Safety Report 8089561-1 (Version None)
Quarter: 2012Q1

REPORT INFORMATION
  Report Type: 
  Country: None (occurrence: None)
  Receive Date: 20120128
  Receipt Date: 20110617
  Transmission Date: 20120608
  Serious: No
  Sender: FDA-Public Use
  Company Number: US-ABBOTT-11P-163-0733464-00

PATIENT
  Sex: Female
  Weight: 59.02 kg

DRUGS (4)
  1. VENTOLIN [Concomitant]
     Indication: ASTHMA
  2. PREDNISONE TAB [Concomitant]
     Indication: CROHN'S DISEASE
  3. HUMIRA [Suspect]
     Indication: CROHN'S DISEASE
     Route: 058
     Dates: start: 20100101, end: 20100528
  4. VICODIN [Concomitant]
     Indication: PAIN

REACTIONS (1)
  - SURGICAL PROCEDURE REPEATED [None]
